FAERS Safety Report 22160906 (Version 1)
Quarter: 2023Q1

REPORT INFORMATION
  Report Type: Spontaneous
  Country: US (occurrence: None)
  Receive Date: 20230331
  Receipt Date: 20230331
  Transmission Date: 20230417
  Serious: Yes (Death)
  Sender: FDA-Public Use
  Company Number: None

PATIENT
  Age: 49 Year
  Sex: Male

DRUGS (1)
  1. PRIMATENE MIST [Suspect]
     Active Substance: EPINEPHRINE

REACTIONS (9)
  - Cardiac arrest [None]
  - Brain injury [None]
  - Encephalopathy [None]
  - Sepsis [None]
  - Pneumonia [None]
  - Hypokalaemia [None]
  - Pulseless electrical activity [None]
  - Wrong technique in product usage process [None]
  - Infusion related reaction [None]

NARRATIVE: CASE EVENT DATE: 20220228
